FAERS Safety Report 5758463-5 (Version None)
Quarter: 2008Q2

REPORT INFORMATION
  Report Type: 
  Country: None (occurrence: None)
  Receive Date: 20080604
  Receipt Date: 20080527
  Transmission Date: 20081010
  Serious: Yes (Hospitalization)
  Sender: FDA-Public Use
  Company Number: SE-AVENTIS-200812436EU

PATIENT
  Age: 89 Year
  Sex: Female

DRUGS (14)
  1. KLEXANE                            /01708202/ [Suspect]
     Indication: THROMBOSIS PROPHYLAXIS
     Route: 058
     Dates: start: 20080209
  2. CEFUROXIME SANDOZ [Suspect]
     Indication: UPPER RESPIRATORY TRACT INFECTION
     Route: 042
     Dates: start: 20080212, end: 20080214
  3. AMIMOX [Suspect]
     Indication: UPPER RESPIRATORY TRACT INFECTION
     Route: 048
     Dates: start: 20080214, end: 20080219
  4. OXYNORM [Concomitant]
  5. KALCIPOS-D [Concomitant]
  6. ISOPTIN [Concomitant]
  7. LASIX LONG [Concomitant]
  8. NOVALUZID                          /00082501/ [Concomitant]
  9. ASPIRIN [Concomitant]
  10. LAKTULOS APELSIN [Concomitant]
  11. ACETYLCYSTEIN ASTRAZENECA [Concomitant]
  12. PULMICORT [Concomitant]
  13. AMILORIDE HYDROCHLORIDE [Concomitant]
  14. COMBIVENT                          /01033501/ [Concomitant]

REACTIONS (4)
  - HEPATOCELLULAR INJURY [None]
  - HYPERBILIRUBINAEMIA [None]
  - NAUSEA [None]
  - TRANSAMINASES INCREASED [None]
